FAERS Safety Report 8326661-2 (Version None)
Quarter: 2012Q2

REPORT INFORMATION
  Report Type: 
  Country: None (occurrence: None)
  Receive Date: 20120501
  Receipt Date: 20120426
  Transmission Date: 20120825
  Serious: Yes (Life-Threatening, Hospitalization, Other)
  Sender: FDA-Public Use
  Company Number: US-ELI_LILLY_AND_COMPANY-US201204009190

PATIENT
  Sex: Male

DRUGS (1)
  1. BYDUREON [Suspect]
     Dosage: 2 MG, WEEKLY (1/W)
     Route: 058
     Dates: start: 20120401

REACTIONS (6)
  - LOSS OF CONSCIOUSNESS [None]
  - CONVULSION [None]
  - MENTAL STATUS CHANGES [None]
  - HYPOMAGNESAEMIA [None]
  - VISUAL ACUITY REDUCED [None]
  - MENINGITIS [None]
